FAERS Safety Report 20501650 (Version 2)
Quarter: 2022Q1

REPORT INFORMATION
  Report Type: Spontaneous
  Country: US (occurrence: US)
  Receive Date: 20220222
  Receipt Date: 20220325
  Transmission Date: 20220424
  Serious: No
  Sender: FDA-Public Use
  Company Number: US-BAYER-2022A022083

PATIENT
  Age: 19 Year
  Sex: Female

DRUGS (17)
  1. LORATADINE [Suspect]
     Active Substance: LORATADINE
  2. DIPHENHYDRAMINE [Suspect]
     Active Substance: DIPHENHYDRAMINE
  3. FEXOFENADINE [Suspect]
     Active Substance: FEXOFENADINE HYDROCHLORIDE
  4. FAMOTIDINE [Suspect]
     Active Substance: FAMOTIDINE
  5. RANITIDINE [Suspect]
     Active Substance: RANITIDINE
  6. LEVOCETIRIZINE [Suspect]
     Active Substance: LEVOCETIRIZINE
  7. CETIRIZINE [Suspect]
     Active Substance: CETIRIZINE HYDROCHLORIDE
  8. CROMOLYN [Concomitant]
     Active Substance: CROMOLYN
  9. KETOTIFEN [Concomitant]
     Active Substance: KETOTIFEN
     Dosage: 2 MG, QD
  10. NALTREXONE [Concomitant]
     Active Substance: NALTREXONE
     Dosage: 3 MG, ONCE, QD
  11. IMATINIB [Concomitant]
     Active Substance: IMATINIB
     Dosage: 100 MG, ONCE, QD
  12. HYDROXYZINE [Concomitant]
     Active Substance: HYDROXYZINE HYDROCHLORIDE
  13. MONTELUKAST [Concomitant]
     Active Substance: MONTELUKAST SODIUM
  14. GLEEVEC [Concomitant]
     Active Substance: IMATINIB MESYLATE
  15. PRUCALOPRIDE [Concomitant]
     Active Substance: PRUCALOPRIDE
     Indication: Constipation
  16. IZ IVIG [Concomitant]
     Dosage: 2 GRAM PER KILOGRAM, TWO DAYS PER MONTH
  17. CELECOXIB [Concomitant]
     Active Substance: CELECOXIB
     Dosage: 100 MG, ONCE, QD

REACTIONS (3)
  - Drug intolerance [None]
  - Feeling abnormal [None]
  - Cerebral disorder [None]
